FAERS Safety Report 5390146-6 (Version None)
Quarter: 2007Q3

REPORT INFORMATION
  Report Type: 
  Country: None (occurrence: None)
  Receive Date: 20070718
  Receipt Date: 20070716
  Transmission Date: 20080115
  Serious: Yes (Other)
  Sender: FDA-Public Use
  Company Number: DE-GENENTECH-244555

PATIENT
  Age: 15 Year
  Sex: Male

DRUGS (3)
  1. XOLAIR [Suspect]
     Indication: ASTHMA
     Dosage: 300 MG, 1/MONTH
     Route: 058
     Dates: end: 20070101
  2. XOLAIR [Suspect]
     Dates: start: 20070101
  3. ASTHMA MEDICATIONS [Concomitant]
     Indication: ASTHMA

REACTIONS (1)
  - ASTHMA [None]
